FAERS Safety Report 6530098-6 (Version None)
Quarter: 2010Q1

REPORT INFORMATION
  Report Type: 
  Country: None (occurrence: None)
  Receive Date: 20100107
  Receipt Date: 20100105
  Transmission Date: 20100710
  Serious: Yes (Other)
  Sender: FDA-Public Use
  Company Number: BE-SANOFI-AVENTIS-2009SA003379

PATIENT
  Age: 70 Year
  Sex: Female
  Weight: 58 kg

DRUGS (9)
  1. PLAVIX [Suspect]
     Route: 048
     Dates: start: 20091101
  2. ASPIRIN [Concomitant]
     Indication: DRUG USE FOR UNKNOWN INDICATION
  3. HMG COA REDUCTASE INHIBITORS [Concomitant]
  4. PERINDOPRIL ERBUMINE [Concomitant]
  5. RENITEC /NET/ [Concomitant]
  6. TRITACE [Concomitant]
  7. ZANIDIP [Concomitant]
  8. HYDROCHLOROTHIAZIDE/OLMESARTAN MEDOXOMIL [Concomitant]
  9. CLONIDINE HCL [Concomitant]

REACTIONS (1)
  - SKIN EXFOLIATION [None]
